FAERS Safety Report 9007926 (Version 1)
Quarter: 2013Q1

REPORT INFORMATION
  Report Type: Spontaneous
  Country: US (occurrence: US)
  Receive Date: 20130111
  Receipt Date: 20130111
  Transmission Date: 20140127
  Serious: No
  Sender: FDA-Public Use
  Company Number: US-PFIZER INC-2013008182

PATIENT
  Age: 60 Year
  Sex: Male
  Weight: 83.9 kg

DRUGS (8)
  1. NITROSTAT [Suspect]
     Indication: CHEST PAIN
     Dosage: 0.4 MG, AS NEEDED
     Route: 060
     Dates: start: 201010
  2. RANEXA [Concomitant]
     Dosage: 500 MG, 2X/DAY
  3. METOPROLOL [Concomitant]
     Dosage: 25 MG, 2X/DAY
  4. IMDUR [Concomitant]
     Dosage: 60 MG, 1X/DAY
  5. NIASPAN [Concomitant]
     Dosage: 1500 MG (THREE TABLETS OF 500MG), 1X/DAY
  6. CLOPIDOGREL [Concomitant]
     Dosage: 75 MG, 1X/DAY
  7. ASPIRIN [Concomitant]
     Dosage: 325 MG, UNK
  8. CRESTOR [Concomitant]
     Dosage: 40 MG, 1X/DAY

REACTIONS (3)
  - Expired drug administered [Unknown]
  - Weight decreased [Unknown]
  - Blood cholesterol increased [Unknown]
